FAERS Safety Report 7159227-0 (Version None)
Quarter: 2010Q4

REPORT INFORMATION
  Report Type: 
  Country: None (occurrence: None)
  Receive Date: 20101214
  Receipt Date: 20100810
  Transmission Date: 20110411
  Serious: No
  Sender: FDA-Public Use
  Company Number: US-ASTRAZENECA-2010SE37553

PATIENT
  Age: 63 Year
  Sex: Female
  Weight: 90.7 kg

DRUGS (2)
  1. CRESTOR [Suspect]
     Indication: HYPERCHOLESTEROLAEMIA
     Route: 048
     Dates: start: 20080101
  2. CRESTOR [Suspect]
     Route: 048

REACTIONS (3)
  - BLOOD GLUCOSE INCREASED [None]
  - FUNGAL INFECTION [None]
  - HIGH DENSITY LIPOPROTEIN DECREASED [None]
